FAERS Safety Report 8505464-X (Version None)
Quarter: 2012Q3

REPORT INFORMATION
  Report Type: 
  Country: None (occurrence: None)
  Receive Date: 20120703
  Receipt Date: 20120627
  Transmission Date: 20120928
  Serious: Yes (Other)
  Sender: FDA-Public Use
  Company Number: 2012SP036114

PATIENT
  Age: 68 Year
  Sex: Male
  Weight: 68 kg

DRUGS (3)
  1. ESCITALOPRAM [Concomitant]
  2. XANAX [Concomitant]
  3. VICTRELIS [Suspect]
     Indication: HEPATITIS C

REACTIONS (2)
  - ASCITES [None]
  - OEDEMA [None]
